FAERS Safety Report 6418323-3 (Version None)
Quarter: 2009Q4

REPORT INFORMATION
  Report Type: 
  Country: None (occurrence: None)
  Receive Date: 20091021
  Receipt Date: 20090617
  Transmission Date: 20100525
  Serious: No
  Sender: FDA-Public Use
  Company Number: ALL1-2009-01687

PATIENT
  Age: 39 Year
  Sex: Male
  Weight: 74.8 kg

DRUGS (2)
  1. VYVANSE [Suspect]
     Indication: ATTENTION DEFICIT/HYPERACTIVITY DISORDER
     Dosage: 30 MG, 1X/DAY:QD, ORAL : 40 MG, 1X/DAY:QD, ORAL
     Route: 048
     Dates: start: 20090501, end: 20090607
  2. VYVANSE [Suspect]
     Indication: ATTENTION DEFICIT/HYPERACTIVITY DISORDER
     Dosage: 30 MG, 1X/DAY:QD, ORAL : 40 MG, 1X/DAY:QD, ORAL
     Route: 048
     Dates: start: 20090608

REACTIONS (12)
  - BLOOD PRESSURE DECREASED [None]
  - BLOOD PRESSURE INCREASED [None]
  - DIARRHOEA [None]
  - DRUG EFFECT DECREASED [None]
  - DRY MOUTH [None]
  - DYSGEUSIA [None]
  - EYE DISCHARGE [None]
  - FAECES PALE [None]
  - FREQUENT BOWEL MOVEMENTS [None]
  - INCREASED APPETITE [None]
  - PALPITATIONS [None]
  - SENSORY DISTURBANCE [None]
